FAERS Safety Report 4404157-8 (Version None)
Quarter: 2004Q3

REPORT INFORMATION
  Report Type: 
  Country: None (occurrence: None)
  Receive Date: 20040719
  Receipt Date: 20040705
  Transmission Date: 20050211
  Serious: Yes (Hospitalization)
  Sender: FDA-Public Use
  Company Number: 6009103F

PATIENT
  Age: 61 Year
  Sex: Female

DRUGS (13)
  1. NIASPAN [Suspect]
     Indication: DYSLIPIDAEMIA
     Dosage: 375 MG QD PO
     Route: 048
     Dates: start: 20040511, end: 20040601
  2. ATORVASTATIN CALCIUM [Concomitant]
  3. CANDESARTAN CILEXETIL [Concomitant]
  4. PLAVIX [Concomitant]
  5. DIGITOXIN TAB [Concomitant]
  6. BISOPROLOL FUMARATE [Concomitant]
  7. ASPIRIN [Concomitant]
  8. VIOXX [Concomitant]
  9. PENTAERITHRITYL TETRANITRATE [Concomitant]
  10. AMLODIPINE [Concomitant]
  11. SPIRONOLACTONE [Concomitant]
  12. HUMALOG [Concomitant]
  13. LANTUS [Concomitant]

REACTIONS (9)
  - ANGINA UNSTABLE [None]
  - DEPRESSED MOOD [None]
  - HYPERTENSION [None]
  - HYPERTRIGLYCERIDAEMIA [None]
  - NORMOCHROMIC NORMOCYTIC ANAEMIA [None]
  - PAIN [None]
  - PULMONARY CONGESTION [None]
  - SINUS BRADYCARDIA [None]
  - SLEEP APNOEA SYNDROME [None]
